FAERS Safety Report 14912015 (Version 3)
Quarter: 2018Q3

REPORT INFORMATION
  Report Type: Spontaneous
  Country: US (occurrence: US)
  Receive Date: 20180518
  Receipt Date: 20180903
  Transmission Date: 20181010
  Serious: No
  Sender: FDA-Public Use
  Company Number: US-PFIZER INC-2018199019

PATIENT
  Sex: Female

DRUGS (1)
  1. GEMFIBROZIL. [Suspect]
     Active Substance: GEMFIBROZIL
     Indication: HYPERLIPIDAEMIA
     Dosage: 600 MG, 2X/DAY (1 TAB BID BEFORE MEALS)
     Route: 048
     Dates: end: 20100312

REACTIONS (3)
  - Pain in extremity [Unknown]
  - Drug hypersensitivity [Unknown]
  - Muscle spasms [Recovered/Resolved]
